FAERS Safety Report 8471834 (Version 2)
Quarter: 2013Q1

REPORT INFORMATION
  Report Type: Spontaneous
  Country: US (occurrence: US)
  Receive Date: 20120322
  Receipt Date: 20130322
  Transmission Date: 20140127
  Serious: Yes (Life-Threatening, Hospitalization)
  Sender: FDA-Public Use
  Company Number: US-BRISTOL-MYERS SQUIBB COMPANY-16361115

PATIENT
  Age: 67 Year
  Sex: Male

DRUGS (3)
  1. ERBITUX [Suspect]
     Indication: EPIGLOTTIC CARCINOMA
     Dosage: 1 TREATMENT
     Route: 042
     Dates: start: 20111118
  2. PERCOCET [Concomitant]
  3. ACETYLSALICYLIC ACID [Concomitant]
     Dosage: ASA

REACTIONS (1)
  - Anaphylactic reaction [Recovered/Resolved]
